FAERS Safety Report 5673387-X (Version None)
Quarter: 2008Q1

REPORT INFORMATION
  Report Type: 
  Country: None (occurrence: None)
  Receive Date: 20080319
  Receipt Date: 20080128
  Transmission Date: 20080703
  Serious: Yes (Death)
  Sender: FDA-Public Use
  Company Number: US-TYCO HEALTHCARE/MALLINCKRODT-T200800396

PATIENT

DRUGS (5)
  1. METHADOSE [Suspect]
  2. MORPHINE [Suspect]
  3. ONDANSETRON [Suspect]
  4. DIAZEPAM [Suspect]
  5. ZOLPIDEM [Suspect]

REACTIONS (2)
  - CARDIO-RESPIRATORY ARREST [None]
  - COMPLETED SUICIDE [None]
